FAERS Safety Report 5861734-5 (Version None)
Quarter: 2008Q3

REPORT INFORMATION
  Report Type: 
  Country: None (occurrence: None)
  Receive Date: 20080826
  Receipt Date: 20080811
  Transmission Date: 20090109
  Serious: Yes (Other)
  Sender: FDA-Public Use
  Company Number: 1000000622

PATIENT
  Age: 25 Year
  Sex: Female

DRUGS (2)
  1. CITALOPRAM HYDROBROMIDE [Suspect]
     Indication: DEPRESSION
     Dosage: 20 MG (20 MG, 1 IN 1 D), ORAL; 10 MG (10 MG, 1 IN 1  D), ORAL
     Route: 048
     Dates: start: 20080304, end: 20080307
  2. CITALOPRAM HYDROBROMIDE [Suspect]
     Indication: DEPRESSION
     Dosage: 20 MG (20 MG, 1 IN 1 D), ORAL; 10 MG (10 MG, 1 IN 1  D), ORAL
     Route: 048
     Dates: start: 20080308

REACTIONS (4)
  - FEELING ABNORMAL [None]
  - PARAESTHESIA [None]
  - SUICIDAL IDEATION [None]
  - SYNCOPE [None]
